FAERS Safety Report 5581239-9 (Version None)
Quarter: 2007Q4

REPORT INFORMATION
  Report Type: 
  Country: None (occurrence: None)
  Receive Date: 20071227
  Receipt Date: 20071214
  Transmission Date: 20080405
  Serious: Yes (Hospitalization, Disabling)
  Sender: FDA-Public Use
  Company Number: 02100-EUR-07-0187

PATIENT
  Age: 80 Year
  Sex: Male

DRUGS (6)
  1. CILOSTAZOL [Suspect]
     Indication: INTERMITTENT CLAUDICATION
     Dosage: 200 MG, ORAL
     Route: 048
     Dates: start: 20070503
  2. ISOSORBIDE DINITRATE [Concomitant]
  3. CANDESARTAN CILEXETIL [Concomitant]
  4. ACETYLSALICYLIC ACID SRT [Concomitant]
  5. PANTOPRAZOLE SODIUM [Concomitant]
  6. TAMSULOSIN HCL [Concomitant]

REACTIONS (2)
  - ACCIDENT [None]
  - HIP FRACTURE [None]
